FAERS Safety Report 6479903-2 (Version None)
Quarter: 2009Q4

REPORT INFORMATION
  Report Type: 
  Country: None (occurrence: None)
  Receive Date: 20091208
  Receipt Date: 20091106
  Transmission Date: 20100525
  Serious: Yes (Other)
  Sender: FDA-Public Use
  Company Number: BR-SANOFI-AVENTIS-2009SA000742

PATIENT
  Age: 73 Year
  Sex: Female
  Weight: 53 kg

DRUGS (12)
  1. LANTUS [Suspect]
     Indication: TYPE 2 DIABETES MELLITUS
     Route: 058
     Dates: start: 20040522
  2. AUTOPEN 24 [Suspect]
     Route: 058
  3. APIDRA SOLOSTAR [Suspect]
     Indication: TYPE 2 DIABETES MELLITUS
     Dosage: 3 IU BEFORE LUNCH AND 3 IU BEFORE DINNER
     Route: 058
     Dates: start: 20090801
  4. SOLOSTAR [Suspect]
     Route: 058
     Dates: start: 20090801
  5. ORAL ANTIDIABETICS [Suspect]
     Indication: TYPE 2 DIABETES MELLITUS
     Route: 048
     Dates: start: 20091109
  6. ATENOLOL [Concomitant]
     Dosage: 2 TAB DAILY
     Route: 048
     Dates: start: 20090701
  7. VALSARTAN [Concomitant]
     Dosage: 320 MG + 5 MG
     Route: 048
     Dates: start: 20090701
  8. METFORMIN HCL [Concomitant]
     Indication: TYPE 2 DIABETES MELLITUS
     Dosage: 2 TABLETS TAKEN DAILY
     Route: 048
     Dates: end: 20091109
  9. DAONIL [Concomitant]
     Indication: TYPE 2 DIABETES MELLITUS
     Route: 048
     Dates: end: 20091109
  10. SOMALGIN [Concomitant]
     Indication: ANTICOAGULANT THERAPY
     Route: 048
  11. CLOPIDOGREL BISULFATE [Concomitant]
     Route: 048
     Dates: start: 20090701
  12. SIMVASTATIN [Concomitant]
     Route: 048

REACTIONS (8)
  - DIZZINESS [None]
  - FEELING ABNORMAL [None]
  - HEADACHE [None]
  - HYPERGLYCAEMIA [None]
  - HYPOGLYCAEMIA [None]
  - INFARCTION [None]
  - NAUSEA [None]
  - VISION BLURRED [None]
